FAERS Safety Report 5545400-1 (Version None)
Quarter: 2007Q4

REPORT INFORMATION
  Report Type: 
  Country: None (occurrence: None)
  Receive Date: 20071211
  Receipt Date: 20071130
  Transmission Date: 20080405
  Serious: Yes (Hospitalization)
  Sender: FDA-Public Use
  Company Number: US-ELI_LILLY_AND_COMPANY-US200712000703

PATIENT
  Sex: Male

DRUGS (2)
  1. ZYPREXA [Suspect]
     Dosage: 10 MG, EACH MORNING
     Route: 048
  2. ZYPREXA [Suspect]
     Dosage: 25 MG, EACH EVENING
     Route: 048

REACTIONS (2)
  - HALLUCINATION [None]
  - HOSPITALISATION [None]
